FAERS Safety Report 11000434 (Version 1)
Quarter: 2015Q2

REPORT INFORMATION
  Report Type: Spontaneous
  Country: US (occurrence: US)
  Receive Date: 20150408
  Receipt Date: 20150408
  Transmission Date: 20150821
  Serious: No
  Sender: FDA-Public Use
  Company Number: US-SA-2014SA092530

PATIENT
  Age: 76 Year
  Sex: Male

DRUGS (1)
  1. ALLEGRA [Suspect]
     Active Substance: FEXOFENADINE HYDROCHLORIDE
     Indication: RHINORRHOEA
     Dosage: STARTED 4 WEEKS A GO
     Route: 048
     Dates: start: 2014, end: 20140709

REACTIONS (1)
  - Drug ineffective [Unknown]
